FAERS Safety Report 7991346-9 (Version None)
Quarter: 2011Q4

REPORT INFORMATION
  Report Type: 
  Country: None (occurrence: None)
  Receive Date: 20111219
  Receipt Date: 20111212
  Transmission Date: 20120403
  Serious: Yes (Death, Life-Threatening, Hospitalization)
  Sender: FDA-Public Use
  Company Number: TW-ROCHE-1021195

PATIENT
  Age: 83 Year
  Sex: Male
  Weight: 57.5 kg

DRUGS (5)
  1. MABTHERA [Suspect]
     Dosage: DAY 1 OF EACH 28 DAY CYCLE
     Dates: start: 20111011, end: 20111011
  2. INOTUZUMAB OZOGAMICIN [Suspect]
     Indication: NON-HODGKIN'S LYMPHOMA
     Route: 042
     Dates: start: 20110816, end: 20111012
  3. MABTHERA [Suspect]
     Indication: NON-HODGKIN'S LYMPHOMA
     Route: 042
     Dates: start: 20110816, end: 20111011
  4. INOTUZUMAB OZOGAMICIN [Suspect]
     Dosage: DAY 2 OF EACH 28 DAY CYCLE
     Dates: start: 20111012, end: 20111012
  5. METRONIDAZOLE [Suspect]
     Indication: PRODUCT USED FOR UNKNOWN INDICATION
     Route: 042
     Dates: start: 20111017, end: 20111028

REACTIONS (3)
  - HEPATITIS [None]
  - PANCREATITIS ACUTE [None]
  - PNEUMONIA [None]
